FAERS Safety Report 24105612 (Version 2)
Quarter: 2024Q3

REPORT INFORMATION
  Report Type: Spontaneous
  Country: US (occurrence: US)
  Receive Date: 20240717
  Receipt Date: 20240819
  Transmission Date: 20241017
  Serious: No
  Sender: SANOFI AVENTIS
  Company Number: US-SA-SAC20240422000010

PATIENT
  Age: 64 Year
  Sex: Male

DRUGS (4)
  1. KEVZARA [Suspect]
     Active Substance: SARILUMAB
     Indication: Rheumatoid arthritis
     Dosage: 200 MG, QOW
     Route: 058
     Dates: start: 202405
  2. KEVZARA [Suspect]
     Active Substance: SARILUMAB
     Indication: Arthropathy
  3. FASENRA [Concomitant]
     Active Substance: BENRALIZUMAB
     Dosage: 30 MG
  4. FASENRA [Concomitant]
     Active Substance: BENRALIZUMAB
     Dosage: 30 MG, Q8W

REACTIONS (6)
  - Fatigue [Unknown]
  - Arthralgia [Unknown]
  - Joint swelling [Unknown]
  - Condition aggravated [Unknown]
  - Product use in unapproved indication [Unknown]
  - Drug ineffective [Unknown]

NARRATIVE: CASE EVENT DATE: 20240101
